FAERS Safety Report 14958784 (Version 1)
Quarter: 2018Q2

REPORT INFORMATION
  Report Type: Spontaneous
  Country: US (occurrence: US)
  Receive Date: 20180510
  Receipt Date: 20180510
  Transmission Date: 20180711
  Serious: Yes (Hospitalization)
  Sender: FDA-Public Use
  Company Number: None

PATIENT
  Age: 50 Year
  Sex: Male
  Weight: 68.9 kg

DRUGS (2)
  1. 5-FLUOROURACIL (5-FU) [Suspect]
     Active Substance: FLUOROURACIL
     Dates: end: 20170316
  2. CISPLATIN. [Suspect]
     Active Substance: CISPLATIN
     Dates: end: 20170313

REACTIONS (8)
  - Febrile neutropenia [None]
  - Hypoalbuminaemia [None]
  - Decreased appetite [None]
  - Hypocalcaemia [None]
  - Hyponatraemia [None]
  - Angioedema [None]
  - Fatigue [None]
  - Dysphagia [None]

NARRATIVE: CASE EVENT DATE: 20170325
